FAERS Safety Report 19740527 (Version 2)
Quarter: 2021Q3

REPORT INFORMATION
  Report Type: Spontaneous
  Country: US (occurrence: US)
  Receive Date: 20210824
  Receipt Date: 20210909
  Transmission Date: 20211014
  Serious: Yes (Life-Threatening, Hospitalization, Other)
  Sender: FDA-Public Use
  Company Number: US-ACCORD-236526

PATIENT
  Age: 60 Year
  Sex: Male

DRUGS (7)
  1. REMDESIVIR. [Concomitant]
     Active Substance: REMDESIVIR
     Indication: COVID-19
  2. DEXMEDETOMIDINE/DEXMEDETOMIDINE HYDROCHLORIDE [Concomitant]
     Active Substance: DEXMEDETOMIDINE HYDROCHLORIDE
     Indication: SEDATION
  3. FENTANYL. [Concomitant]
     Active Substance: FENTANYL
     Indication: SEDATION
  4. CISATRACURIUM/CISATRACURIUM BESILATE [Suspect]
     Active Substance: CISATRACURIUM BESYLATE
     Indication: MUSCLE RELAXANT THERAPY
  5. DEXAMETHASONE. [Concomitant]
     Active Substance: DEXAMETHASONE
     Indication: COVID-19
  6. PROPOFOL. [Concomitant]
     Active Substance: PROPOFOL
     Indication: SEDATION
  7. MIDAZOLAM. [Concomitant]
     Active Substance: MIDAZOLAM
     Indication: SEDATION

REACTIONS (1)
  - Hyperthermia malignant [Recovered/Resolved]
